FAERS Safety Report 5577660-5 (Version None)
Quarter: 2007Q4

REPORT INFORMATION
  Report Type: 
  Country: None (occurrence: None)
  Receive Date: 20071231
  Receipt Date: 20071226
  Transmission Date: 20080405
  Serious: Yes (Life-Threatening, Hospitalization)
  Sender: FDA-Public Use
  Company Number: PHHO2007FR21071

PATIENT
  Age: 66 Year
  Sex: Female
  Weight: 68.7 kg

DRUGS (4)
  1. CORTANCYL [Suspect]
  2. CERTICAN [Suspect]
     Indication: RENAL TRANSPLANT
     Dosage: 1 MG / DAY
     Route: 048
     Dates: start: 20070727, end: 20071219
  3. NEORAL [Suspect]
     Indication: RENAL TRANSPLANT
  4. SOLU-MEDROL [Suspect]

REACTIONS (5)
  - COMPLICATIONS OF TRANSPLANT SURGERY [None]
  - DISEASE PROGRESSION [None]
  - DISSEMINATED INTRAVASCULAR COAGULATION [None]
  - DRUG INEFFECTIVE [None]
  - OESOPHAGEAL HAEMORRHAGE [None]
